FAERS Safety Report 5344073-0 (Version None)
Quarter: 2007Q2

REPORT INFORMATION
  Report Type: 
  Country: None (occurrence: None)
  Receive Date: 20070604
  Receipt Date: 20070601
  Transmission Date: 20071010
  Serious: Yes (Other)
  Sender: FDA-Public Use
  Company Number: B0465921A

PATIENT
  Age: 10 Year
  Sex: Male
  Weight: 36 kg

DRUGS (2)
  1. RELENZA [Suspect]
     Dosage: 10MG TWICE PER DAY
     Route: 055
     Dates: start: 20070404, end: 20070406
  2. CALONAL [Concomitant]
     Indication: INFLUENZA
     Dosage: 2.4G PER DAY
     Route: 048
     Dates: start: 20070404

REACTIONS (4)
  - ABNORMAL BEHAVIOUR [None]
  - DIZZINESS [None]
  - HALLUCINATION [None]
  - SPEECH DISORDER [None]
